FAERS Safety Report 10164270 (Version 1)
Quarter: 2014Q2

REPORT INFORMATION
  Report Type: Spontaneous
  Country: US (occurrence: US)
  Receive Date: 20140510
  Receipt Date: 20140510
  Transmission Date: 20141212
  Serious: No
  Sender: FDA-Public Use
  Company Number: US-BRISTOL-MYERS SQUIBB COMPANY-20089587

PATIENT
  Age: 67 Year
  Sex: Female
  Weight: 74.83 kg

DRUGS (4)
  1. BYETTA PEN DISPOSABLE [Suspect]
     Route: 058
  2. METFORMIN HCL [Suspect]
  3. NOVOLOG [Suspect]
     Dosage: 1DF: 20UNITS, 10UNITS
  4. LANTUS [Suspect]
     Dosage: AT NIGHT

REACTIONS (6)
  - Blood glucose decreased [Unknown]
  - Diarrhoea [Unknown]
  - Vomiting [Unknown]
  - Weight decreased [Recovered/Resolved]
  - Decreased appetite [Unknown]
  - Constipation [Unknown]
